FAERS Safety Report 5377295-3 (Version None)
Quarter: 2007Q3

REPORT INFORMATION
  Report Type: 
  Country: None (occurrence: None)
  Receive Date: 20070703
  Receipt Date: 20070622
  Transmission Date: 20080115
  Serious: Yes (Other)
  Sender: FDA-Public Use
  Company Number: US-ROCHE-503891

PATIENT
  Sex: Female

DRUGS (4)
  1. BONIVA [Suspect]
     Indication: DRUG USE FOR UNKNOWN INDICATION
     Route: 048
     Dates: start: 20060601
  2. DIOVAN [Concomitant]
  3. IMDUR [Concomitant]
  4. ASPIRIN [Concomitant]

REACTIONS (1)
  - HYDROCEPHALUS [None]
